FAERS Safety Report 6997781-X (Version None)
Quarter: 2010Q3

REPORT INFORMATION
  Report Type: 
  Country: None (occurrence: None)
  Receive Date: 20100920
  Receipt Date: 20100907
  Transmission Date: 20110219
  Serious: Yes (Hospitalization)
  Sender: FDA-Public Use
  Company Number: DE-BIOGENIDEC-2010BI030929

PATIENT
  Age: 49 Year
  Sex: Female
  Weight: 63 kg

DRUGS (2)
  1. TYSABRI [Suspect]
     Indication: RELAPSING-REMITTING MULTIPLE SCLEROSIS
     Route: 042
     Dates: start: 20070801, end: 20100610
  2. TYSABRI [Suspect]
     Route: 042
     Dates: start: 20100624

REACTIONS (4)
  - FALL [None]
  - FEMUR FRACTURE [None]
  - MUSCLE SPASTICITY [None]
  - MUSCLE STRAIN [None]
